FAERS Safety Report 4615236-4 (Version None)
Quarter: 2005Q1

REPORT INFORMATION
  Report Type: 
  Country: None (occurrence: None)
  Receive Date: 20050317
  Receipt Date: 20050308
  Transmission Date: 20050727
  Serious: Yes (Death)
  Sender: FDA-Public Use
  Company Number: 2004-00914

PATIENT
  Age: 75 Year
  Sex: Female

DRUGS (7)
  1. VELCADE [Suspect]
     Indication: MULTIPLE MYELOMA
     Dosage: 1.30 MG/M2, 2/WEEK,
     Dates: start: 20040903, end: 20040923
  2. CITALOPRAM HYDROBROMIDE [Concomitant]
  3. GLAZIDIM (CEFTAZIDIME) [Concomitant]
  4. STILNOCT (ZOLPIDEM TARTRATE) [Concomitant]
  5. DOLZAM (TRAMADOL HYDROCHLORIDE) [Concomitant]
  6. ACETAMINOPHEN [Concomitant]
  7. ZOVIRAX INJECTION ^WELLCOME FARMACEUTICA^ (ACICLOVIR SODIUM) [Concomitant]

REACTIONS (5)
  - HERPES ZOSTER [None]
  - IMMUNODEFICIENCY [None]
  - IMMUNOSUPPRESSION [None]
  - INFECTION IN AN IMMUNOCOMPROMISED HOST [None]
  - STAPHYLOCOCCAL SEPSIS [None]
